FAERS Safety Report 6882543-4 (Version None)
Quarter: 2010Q3

REPORT INFORMATION
  Report Type: 
  Country: None (occurrence: None)
  Receive Date: 20100702
  Receipt Date: 20100302
  Transmission Date: 20110219
  Serious: Yes (Other)
  Sender: FDA-Public Use
  Company Number: 226214USA

PATIENT
  Age: 10 Year

DRUGS (1)
  1. RISPERIDONE [Suspect]
     Indication: MUSCLE SPASMS
     Dosage: 2 MG (1 MG, 2 IN 1 D), ORAL
     Route: 048
     Dates: end: 20060101

REACTIONS (2)
  - DYSPNOEA [None]
  - DYSTONIA [None]
